FAERS Safety Report 8220847-3 (Version None)
Quarter: 2012Q1

REPORT INFORMATION
  Report Type: 
  Country: None (occurrence: None)
  Receive Date: 20120320
  Receipt Date: 20120315
  Transmission Date: 20120608
  Serious: Yes (Hospitalization, Other)
  Sender: FDA-Public Use
  Company Number: US-PFIZER INC-2012069831

PATIENT
  Sex: Male

DRUGS (1)
  1. XANAX [Suspect]
     Dosage: UNK

REACTIONS (2)
  - HYPOKINESIA [None]
  - CARDIAC ARREST [None]
